FAERS Safety Report 6401043-9 (Version None)
Quarter: 2009Q4

REPORT INFORMATION
  Report Type: 
  Country: None (occurrence: None)
  Receive Date: 20091013
  Receipt Date: 20091013
  Transmission Date: 20100525
  Serious: Yes (Other)
  Sender: FDA-Public Use
  Company Number: None

PATIENT
  Age: 52 Year
  Sex: Male
  Weight: 106.5953 kg

DRUGS (3)
  1. BUPROPION HCL [Suspect]
     Indication: MAJOR DEPRESSION
     Dosage: 300 MG 1/DAY PO
     Route: 048
     Dates: start: 20090629, end: 20090915
  2. SERTRALINE HCL [Concomitant]
  3. FLUTICASONE PROPIONATE [Concomitant]

REACTIONS (6)
  - DRUG EFFECT DECREASED [None]
  - INDIFFERENCE [None]
  - LETHARGY [None]
  - MEDICATION RESIDUE [None]
  - PRODUCT SUBSTITUTION ISSUE [None]
  - UNEVALUABLE EVENT [None]
